FAERS Safety Report 15084905 (Version 4)
Quarter: 2018Q3

REPORT INFORMATION
  Report Type: Spontaneous
  Country: JP (occurrence: JP)
  Receive Date: 20180628
  Receipt Date: 20180921
  Transmission Date: 20181010
  Serious: Yes (Hospitalization)
  Sender: FDA-Public Use
  Company Number: JP-FERRINGPH-2018FE03028

PATIENT

DRUGS (4)
  1. PROGEHORMON [Concomitant]
     Indication: PROGESTIN REPLACEMENT THERAPY
     Dosage: 50 MG, UNK
     Route: 030
     Dates: start: 20171115, end: 20171121
  2. LUTINUS [Suspect]
     Active Substance: PROGESTERONE
     Dosage: 1 DF, 3 TIMES DAILY
     Route: 067
     Dates: end: 20180103
  3. ESTRANA [Concomitant]
     Active Substance: ESTRADIOL
     Indication: PROGESTIN REPLACEMENT THERAPY
     Dosage: 2 DF, UNK
     Route: 062
     Dates: start: 20171023, end: 20180103
  4. LUTINUS [Suspect]
     Active Substance: PROGESTERONE
     Indication: ASSISTED FERTILISATION
     Dosage: 1 DF, 3 TIMES DAILY
     Route: 067
     Dates: start: 20171108

REACTIONS (2)
  - Salpingo-oophoritis [Recovering/Resolving]
  - Endometritis [Recovering/Resolving]

NARRATIVE: CASE EVENT DATE: 20171115
